FAERS Safety Report 4945316-5 (Version None)
Quarter: 2006Q1

REPORT INFORMATION
  Report Type: 
  Country: None (occurrence: None)
  Receive Date: 20060315
  Receipt Date: 20060315
  Transmission Date: 20060701
  Serious: Yes (Hospitalization)
  Sender: FDA-Public Use
  Company Number: None

PATIENT
  Age: 85 Year
  Sex: Male
  Weight: 85 kg

DRUGS (12)
  1. WARFARIN 2.5 MG AND 1 MG DUPONT [Suspect]
     Indication: CEREBROVASCULAR ACCIDENT
     Dosage: 3.5 MG DAILY PO
     Route: 048
     Dates: start: 19970101, end: 20060314
  2. WARFARIN 2.5 MG AND 1 MG DUPONT [Suspect]
     Indication: DEEP VEIN THROMBOSIS
     Dosage: 3.5 MG DAILY PO
     Route: 048
     Dates: start: 19970101, end: 20060314
  3. DIVALPROEX SODIUM [Concomitant]
  4. FELODIPINE [Concomitant]
  5. FUROSEMIDE [Concomitant]
  6. GLIPIZIDE [Concomitant]
  7. ISOSORBIDE MONONITRATE [Concomitant]
  8. LEVOTHYROXINE SODIUM [Concomitant]
  9. OMEPRAZOLE [Concomitant]
  10. POTASSIUM CHLORIDE [Concomitant]
  11. SIMVASTATIN [Concomitant]
  12. TRAMADOL HCL [Concomitant]

REACTIONS (2)
  - ARTERIAL THROMBOSIS [None]
  - FACTOR V LEIDEN MUTATION [None]
